FAERS Safety Report 6852513-0 (Version None)
Quarter: 2010Q3

REPORT INFORMATION
  Report Type: 
  Country: None (occurrence: None)
  Receive Date: 20100717
  Receipt Date: 20071114
  Transmission Date: 20110219
  Serious: No
  Sender: FDA-Public Use
  Company Number: US-PFIZER INC-2007098147

PATIENT
  Sex: Female
  Weight: 56 kg

DRUGS (4)
  1. CHANTIX [Suspect]
     Indication: SMOKING CESSATION THERAPY
     Dates: start: 20071023
  2. EXCEDRIN (MIGRAINE) [Concomitant]
  3. PAXIL [Concomitant]
  4. ORAL CONTRACEPTIVE NOS [Concomitant]

REACTIONS (6)
  - DIZZINESS [None]
  - DRUG DOSE OMISSION [None]
  - FATIGUE [None]
  - HEADACHE [None]
  - NAUSEA [None]
  - NERVOUSNESS [None]
